FAERS Safety Report 15640325 (Version 2)
Quarter: 2018Q4

REPORT INFORMATION
  Report Type: Spontaneous
  Country: ES (occurrence: ES)
  Receive Date: 20181120
  Receipt Date: 20181126
  Transmission Date: 20190205
  Serious: No
  Sender: FDA-Public Use
  Company Number: ES-PFIZER INC-2018475317

PATIENT
  Age: 35 Year
  Sex: Female

DRUGS (5)
  1. CELECOXIB. [Suspect]
     Active Substance: CELECOXIB
     Dosage: 200 MG, EVERY 12 HOURS
     Route: 065
     Dates: start: 201408, end: 201501
  2. CELECOXIB. [Suspect]
     Active Substance: CELECOXIB
     Dosage: 200 MG, EVERY 12 HOURS
     Route: 065
  3. BENDAMUSTINE HYDROCHLORIDE. [Concomitant]
     Active Substance: BENDAMUSTINE HYDROCHLORIDE
     Indication: HODGKIN^S DISEASE
     Dosage: 90 MG/M2, POWDER (EXCEPT DUSTING POWDER)
     Route: 042
  4. CELECOXIB. [Suspect]
     Active Substance: CELECOXIB
     Indication: HODGKIN^S DISEASE
     Dosage: 200 MG, EVERY 12 HOURS
     Route: 065
     Dates: end: 201603
  5. LENALIDOMIDE [Concomitant]
     Active Substance: LENALIDOMIDE
     Indication: HODGKIN^S DISEASE
     Dosage: 20 MG, UNKNOWN FREQ. (FOR 3 OF EVERY 4 WEEKS)
     Route: 065
     Dates: start: 201408, end: 201501

REACTIONS (1)
  - Drug effective for unapproved indication [Unknown]
